FAERS Safety Report 5028456-4 (Version None)
Quarter: 2006Q2

REPORT INFORMATION
  Report Type: 
  Country: None (occurrence: None)
  Receive Date: 20060617
  Receipt Date: 20060614
  Transmission Date: 20061013
  Serious: Yes (Other)
  Sender: FDA-Public Use
  Company Number: CA-GLAXOSMITHKLINE-A0609182A

PATIENT
  Age: 30 Year
  Sex: Male

DRUGS (5)
  1. ZOFRAN [Suspect]
     Indication: DRUG USE FOR UNKNOWN INDICATION
     Dosage: 16MG FOUR TIMES PER DAY
     Route: 065
  2. MIRTAZAPINE [Suspect]
     Indication: DRUG USE FOR UNKNOWN INDICATION
     Dosage: 60MG PER DAY
     Route: 065
  3. CLONAZEPAM [Concomitant]
  4. DOCUSATE [Concomitant]
  5. HYDROMORPH CONTIN [Concomitant]

REACTIONS (9)
  - AGITATION [None]
  - CARDIAC ARREST [None]
  - DYSPNOEA [None]
  - MYOCLONUS [None]
  - PYREXIA [None]
  - RESPIRATORY ARREST [None]
  - SEPSIS [None]
  - SEROTONIN SYNDROME [None]
  - TACHYCARDIA [None]
